FAERS Safety Report 16485323 (Version 1)
Quarter: 2019Q2

REPORT INFORMATION
  Report Type: Other
  Country: US (occurrence: US)
  Receive Date: 20190627
  Receipt Date: 20190627
  Transmission Date: 20190711
  Serious: Yes (Other)
  Sender: FDA-Public Use
  Company Number: US-VIRTUS PHARMACEUTICALS, LLC-2019VTS00014

PATIENT
  Sex: Female

DRUGS (17)
  1. PROMETRIUM [Suspect]
     Active Substance: PROGESTERONE
     Dosage: UNK
     Route: 048
     Dates: start: 20000206, end: 20010101
  2. CLIMARA [Suspect]
     Active Substance: ESTRADIOL
     Dosage: UNK
     Route: 062
     Dates: start: 19990125, end: 20010101
  3. BUSPIRONE [Concomitant]
     Active Substance: BUSPIRONE HYDROCHLORIDE
  4. LAC-HYDRIN [Concomitant]
     Active Substance: AMMONIUM LACTATE
  5. VITAMIN E [Concomitant]
     Active Substance: .ALPHA.-TOCOPHEROL
  6. PROMETRIUM [Suspect]
     Active Substance: PROGESTERONE
     Dosage: UNK
     Route: 048
     Dates: start: 19990309, end: 19991105
  7. HYDROCODONE [Concomitant]
     Active Substance: HYDROCODONE
  8. EVISTA [Concomitant]
     Active Substance: RALOXIFENE HYDROCHLORIDE
  9. MULTIVITAMINS [Concomitant]
     Active Substance: VITAMINS
  10. RELAFEN [Concomitant]
     Active Substance: NABUMETONE
  11. CARISOPRODOL. [Concomitant]
     Active Substance: CARISOPRODOL
  12. RENOVA [Concomitant]
     Active Substance: TRETINOIN
  13. NULYTELY [Concomitant]
     Active Substance: POLYETHYLENE GLYCOL 3350\POTASSIUM CHLORIDE\SODIUM BICARBONATE\SODIUM CHLORIDE
  14. CELEBREX [Concomitant]
     Active Substance: CELECOXIB
  15. PREMPRO [Suspect]
     Active Substance: ESTROGENS, CONJUGATED\MEDROXYPROGESTERONE ACETATE
     Dosage: UNK
     Route: 048
     Dates: start: 20010112, end: 20020530
  16. TRIMOX [Concomitant]
     Active Substance: AMOXICILLIN
  17. CYCLOBENZAPRINE. [Concomitant]
     Active Substance: CYCLOBENZAPRINE

REACTIONS (5)
  - Arteriosclerosis [Unknown]
  - Depression [Unknown]
  - Cerebrovascular accident [Unknown]
  - Coronary artery disease [Unknown]
  - Menstrual disorder [Unknown]
